FAERS Safety Report 7222073-3 (Version None)
Quarter: 2011Q1

REPORT INFORMATION
  Report Type: 
  Country: None (occurrence: None)
  Receive Date: 20110112
  Receipt Date: 20110105
  Transmission Date: 20110831
  Serious: Yes (Hospitalization)
  Sender: FDA-Public Use
  Company Number: FR-JNJFOC-20101108646

PATIENT
  Age: 83 Year
  Sex: Male

DRUGS (11)
  1. TAVANIC [Suspect]
     Indication: STAPHYLOCOCCAL INFECTION
     Route: 048
  2. ORBENINE [Suspect]
     Indication: STAPHYLOCOCCAL INFECTION
     Route: 042
  3. ELISOR [Concomitant]
     Route: 065
  4. KARDEGIC [Concomitant]
     Route: 065
  5. TAVANIC [Suspect]
     Route: 048
  6. METFORMIN [Concomitant]
     Route: 065
  7. FUROSEMIDE [Concomitant]
     Route: 065
  8. LOVENOX [Concomitant]
     Route: 065
  9. PROSCAR [Concomitant]
     Route: 065
  10. NOVONORM [Concomitant]
     Route: 065
  11. ENALAPRIL MALEATE [Concomitant]
     Route: 065

REACTIONS (6)
  - RENAL FAILURE ACUTE [None]
  - VASCULAR PURPURA [None]
  - NEPHROPATHY [None]
  - PANCYTOPENIA [None]
  - SKIN ULCER [None]
  - HYPERSENSITIVITY [None]
